FAERS Safety Report 7175908-7 (Version None)
Quarter: 2010Q4

REPORT INFORMATION
  Report Type: 
  Country: None (occurrence: None)
  Receive Date: 20101215
  Receipt Date: 20101215
  Transmission Date: 20110411
  Serious: Yes (Other)
  Sender: FDA-Public Use
  Company Number: None

PATIENT
  Age: 27 Year
  Sex: Female
  Weight: 70.3075 kg

DRUGS (2)
  1. BUDEPRION 300MG XL ONE WK TEVA [Suspect]
     Indication: DEPRESSION
     Dosage: BUDEPRION 300 MG XL QD ORAL
     Route: 048
     Dates: start: 20100301
  2. BUPROPRION 150 MG WILSON [Suspect]

REACTIONS (2)
  - DEPRESSED MOOD [None]
  - PRODUCT SUBSTITUTION ISSUE [None]
